FAERS Safety Report 8192713-3 (Version None)
Quarter: 2012Q1

REPORT INFORMATION
  Report Type: 
  Country: None (occurrence: None)
  Receive Date: 20120308
  Receipt Date: 20120227
  Transmission Date: 20120608
  Serious: No
  Sender: FDA-Public Use
  Company Number: US-JNJFOC-20120300803

PATIENT
  Age: 68 Year
  Sex: Male
  Weight: 98.88 kg

DRUGS (4)
  1. CYMBALTA [Concomitant]
     Route: 048
  2. FENTANYL-100 [Suspect]
     Indication: FIBROMYALGIA
     Dosage: NDC #0781-7240-55
     Route: 062
     Dates: start: 20120102
  3. TRAMADOL HCL [Concomitant]
     Indication: PAIN
     Route: 048
  4. HYDROCODONE BITARTRATE [Concomitant]
     Indication: PAIN
     Route: 048

REACTIONS (8)
  - PRURITUS [None]
  - DRUG ADMINISTRATION ERROR [None]
  - MUSCULOSKELETAL DISORDER [None]
  - FEELING ABNORMAL [None]
  - PRODUCT QUALITY ISSUE [None]
  - TREATMENT NONCOMPLIANCE [None]
  - WRONG TECHNIQUE IN DRUG USAGE PROCESS [None]
  - DRUG INEFFECTIVE [None]
